FAERS Safety Report 6746701-1 (Version None)
Quarter: 2010Q2

REPORT INFORMATION
  Report Type: 
  Country: None (occurrence: None)
  Receive Date: 20100528
  Receipt Date: 20090624
  Transmission Date: 20101027
  Serious: No
  Sender: FDA-Public Use
  Company Number: A0777363A

PATIENT
  Age: 62 Year
  Sex: Female

DRUGS (3)
  1. VENTOLIN [Suspect]
     Indication: ASTHMA
     Dosage: 2PUFF UNKNOWN
     Route: 055
     Dates: start: 20090201
  2. ATENOLOL [Concomitant]
  3. LOVASTATIN [Concomitant]

REACTIONS (3)
  - DRUG INEFFECTIVE [None]
  - DYSPNOEA [None]
  - PRODUCT QUALITY ISSUE [None]
